FAERS Safety Report 19904013 (Version 2)
Quarter: 2021Q4

REPORT INFORMATION
  Report Type: Spontaneous
  Country: GB (occurrence: GB)
  Receive Date: 20211001
  Receipt Date: 20211012
  Transmission Date: 20220303
  Serious: Yes (Other)
  Sender: FDA-Public Use
  Company Number: None

PATIENT

DRUGS (20)
  1. PREDNISOLONE [Suspect]
     Active Substance: PREDNISOLONE
     Indication: Eczema
     Dosage: 3-10 DAY 5MG ON 4 OR 5 OCCASIONS IN A 2 YEAR PERIOD
     Route: 048
     Dates: start: 20110121, end: 20130314
  2. HYDROCORTISONE [Suspect]
     Active Substance: HYDROCORTISONE
     Dosage: TO FACE AND BODY, PRN
     Dates: start: 19890531, end: 20170616
  3. BETNOVATE [Suspect]
     Active Substance: BETAMETHASONE
     Indication: Eczema
     Dosage: TOPICALLY TO THE BODY SOMETIMES 1-2 TIMES A DAY
     Route: 061
     Dates: start: 20000828, end: 20080914
  4. CLOBETASOL PROPIONATE [Suspect]
     Active Substance: CLOBETASOL PROPIONATE
     Indication: Dermatitis atopic
     Dosage: TOPICALLY SOMETIMES ONCE A DAY FOR LONGER THAN 7 DAYS
     Route: 061
     Dates: start: 20090914, end: 20140224
  5. CLOBETASOL [Suspect]
     Active Substance: CLOBETASOL
     Indication: Dermatitis atopic
     Dosage: UNK
     Route: 061
     Dates: start: 20090914, end: 20140224
  6. ELOCON [Suspect]
     Active Substance: MOMETASONE FUROATE
     Indication: Eczema
     Dosage: UNK
     Route: 061
     Dates: start: 20110114, end: 20120417
  7. EUMOVATE [Suspect]
     Active Substance: CLOBETASONE BUTYRATE
     Indication: Eczema
     Dosage: UNK
     Route: 061
     Dates: start: 20110114, end: 20130412
  8. KENALOG [Suspect]
     Active Substance: TRIAMCINOLONE ACETONIDE
     Dosage: UNK
     Dates: start: 20130514
  9. PENICILLIN [Suspect]
     Active Substance: PENICILLIN
     Indication: Tonsillitis
     Dosage: 7 DAY COURSE CUT SHORT DUE TO ALLERGIC REACTION
     Route: 048
     Dates: start: 19991222, end: 19991224
  10. PROTOPIC [Suspect]
     Active Substance: TACROLIMUS
     Indication: Eczema
     Dosage: TO THE FACE AND NECK, AS NECESSSARY
     Route: 061
     Dates: start: 20110121, end: 20140224
  11. ACYCLOVIR [Concomitant]
     Active Substance: ACYCLOVIR
     Dosage: UNK
  12. EPINEPHRINE [Concomitant]
     Active Substance: EPINEPHRINE
     Dosage: UNK
  13. BECONASE AQ [Concomitant]
     Active Substance: BECLOMETHASONE DIPROPIONATE MONOHYDRATE
     Dosage: UNK
  14. CETIRIZINE HYDROCHLORIDE [Concomitant]
     Active Substance: CETIRIZINE HYDROCHLORIDE
     Dosage: UNK
  15. FEXOFENADINE HYDROCHLORIDE [Concomitant]
     Active Substance: FEXOFENADINE HYDROCHLORIDE
  16. FUCIDIN [Concomitant]
     Active Substance: FUSIDATE SODIUM
  17. IBROFEN [Concomitant]
     Dosage: UNK
  18. ACETAMINOPHEN [Concomitant]
     Active Substance: ACETAMINOPHEN
     Dosage: UNK
  19. ALBUTEROL SULFATE [Concomitant]
     Active Substance: ALBUTEROL SULFATE
     Dosage: UNK
  20. SUDAFED NASAL SPRAY [Concomitant]
     Dosage: UNK

REACTIONS (12)
  - Skin infection [Not Recovered/Not Resolved]
  - Skin weeping [Not Recovered/Not Resolved]
  - Skin exfoliation [Not Recovered/Not Resolved]
  - Pain of skin [Not Recovered/Not Resolved]
  - Eczema herpeticum [Unknown]
  - Skin warm [Unknown]
  - Skin burning sensation [Recovered/Resolved]
  - Hyperhidrosis [Unknown]
  - Anxiety [Unknown]
  - Pyrexia [Not Recovered/Not Resolved]
  - Hypersensitivity [Unknown]
  - Drug withdrawal syndrome [Unknown]

NARRATIVE: CASE EVENT DATE: 20080419
